FAERS Safety Report 19458292 (Version 1)
Quarter: 2021Q2

REPORT INFORMATION
  Report Type: Spontaneous
  Country: US (occurrence: US)
  Receive Date: 20210624
  Receipt Date: 20210624
  Transmission Date: 20210717
  Serious: No
  Sender: FDA-Public Use
  Company Number: US-PFIZER INC-2021619428

PATIENT
  Age: 45 Year
  Sex: Female
  Weight: 97.52 kg

DRUGS (2)
  1. GENOTROPIN [Suspect]
     Active Substance: SOMATROPIN
     Dosage: 2. 4 MG ONCE A DAY BY INJECTION
  2. GENOTROPIN [Suspect]
     Active Substance: SOMATROPIN
     Indication: GROWTH HORMONE DEFICIENCY
     Dosage: 2. 4 MG ONCE A DAY BY INJECTION

REACTIONS (5)
  - Device power source issue [Unknown]
  - Drug dose omission by device [Not Recovered/Not Resolved]
  - Device information output issue [Unknown]
  - Device use issue [Unknown]
  - Device issue [Unknown]

NARRATIVE: CASE EVENT DATE: 20210522
